FAERS Safety Report 8599805-5 (Version None)
Quarter: 2012Q3

REPORT INFORMATION
  Report Type: 
  Country: None (occurrence: None)
  Receive Date: 20120816
  Receipt Date: 20120809
  Transmission Date: 20120928
  Serious: No
  Sender: FDA-Public Use
  Company Number: US-ASTRAZENECA-2012SE56816

PATIENT
  Age: 61 Year
  Sex: Female

DRUGS (4)
  1. PRILOSEC OTC [Interacting]
     Route: 048
  2. OMEPRAZOLE [Suspect]
     Route: 048
  3. WARFARIN SODIUM [Interacting]
  4. NEXIUM [Suspect]
     Route: 048

REACTIONS (8)
  - ARTHRITIS [None]
  - MALAISE [None]
  - COUGH [None]
  - RETCHING [None]
  - DRUG DOSE OMISSION [None]
  - REGURGITATION [None]
  - DRUG INEFFECTIVE [None]
  - DRUG INTERACTION [None]
